FAERS Safety Report 24279561 (Version 1)
Quarter: 2024Q3

REPORT INFORMATION
  Report Type: Spontaneous
  Country: IN (occurrence: IN)
  Receive Date: 20240904
  Receipt Date: 20240904
  Transmission Date: 20241016
  Serious: Yes (Other)
  Sender: ABBVIE
  Company Number: IN-ABBVIE-5901686

PATIENT
  Age: 62 Year
  Sex: Male

DRUGS (2)
  1. OZURDEX [Suspect]
     Active Substance: DEXAMETHASONE
     Indication: Macular oedema
     Dosage: TIME INTERVAL: AS NECESSARY: IN LEFT EYE OVER 2 YEARS
     Route: 050
  2. RAZUMAB [Concomitant]
     Indication: Macular oedema
     Dosage: LOADING DOSE OF 3 INTRAVITREAL INJECTIONS?2 YEARS
     Route: 050

REACTIONS (1)
  - Retinal injury [Unknown]
